FAERS Safety Report 7109403-8 (Version None)
Quarter: 2010Q4

REPORT INFORMATION
  Report Type: 
  Country: None (occurrence: None)
  Receive Date: 20101118
  Receipt Date: 20101108
  Transmission Date: 20110411
  Serious: Yes (Hospitalization)
  Sender: FDA-Public Use
  Company Number: US-BIOGENIDEC-2010BI022414

PATIENT
  Age: 56 Year
  Sex: Male
  Weight: 83 kg

DRUGS (19)
  1. TYSABRI [Suspect]
     Indication: MULTIPLE SCLEROSIS
     Route: 042
     Dates: start: 20071031
  2. RITALIN [Concomitant]
     Indication: FATIGUE
  3. PROVIGIL [Concomitant]
     Indication: FATIGUE
  4. TERAZOSIN HCL [Concomitant]
     Indication: PROSTATOMEGALY
  5. OXYBUTYNIN [Concomitant]
     Indication: BLADDER DISORDER
  6. OXYBUTYNIN [Concomitant]
     Indication: INCONTINENCE
  7. OXYBUTYNIN [Concomitant]
     Indication: MICTURITION URGENCY
  8. OMEPRAZOLE [Concomitant]
     Indication: GASTROOESOPHAGEAL REFLUX DISEASE
  9. LORATADINE [Concomitant]
     Indication: HYPERTENSION
  10. ENALAPRIL MALEATE [Concomitant]
     Indication: HYPERTENSION
  11. IRON SULFATETHIAMIN COMPOUND TAB [Concomitant]
     Indication: BLOOD IRON DECREASED
  12. LIDODERM [Concomitant]
     Indication: BACK PAIN
     Route: 062
  13. HYDROCODONE [Concomitant]
     Indication: PAIN
  14. GABAPENTIN [Concomitant]
     Indication: NEURALGIA
  15. DOCUSATE SODIUM [Concomitant]
     Indication: CONSTIPATION
     Dates: start: 19960101
  16. DOCUSATE SODIUM [Concomitant]
     Indication: PROPHYLAXIS
     Dates: start: 19960101
  17. BACLOFEN [Concomitant]
     Indication: MUSCLE SPASMS
  18. ATENOLOL [Concomitant]
     Indication: HYPERTENSION
  19. FLUNISOLIDE [Concomitant]
     Indication: SEASONAL ALLERGY

REACTIONS (5)
  - ASTHENIA [None]
  - BACK PAIN [None]
  - DRUG EFFECT DELAYED [None]
  - FALL [None]
  - MULTIPLE SCLEROSIS RELAPSE [None]
